FAERS Safety Report 4554066-9 (Version None)
Quarter: 2005Q1

REPORT INFORMATION
  Report Type: 
  Country: None (occurrence: None)
  Receive Date: 20050113
  Receipt Date: 20050113
  Transmission Date: 20050727
  Serious: Yes (Life-Threatening, Hospitalization, Disabling)
  Sender: FDA-Public Use
  Company Number: None

PATIENT
  Age: 45 Year
  Sex: Female
  Weight: 77.1115 kg

DRUGS (1)
  1. DEPAKOTE [Suspect]
     Indication: MANIA
     Dates: start: 19920101

REACTIONS (9)
  - CHOLELITHIASIS [None]
  - DEHYDRATION [None]
  - DIARRHOEA [None]
  - HEPATIC NEOPLASM MALIGNANT [None]
  - MALAISE [None]
  - MALNUTRITION [None]
  - PAIN [None]
  - PANCREATITIS [None]
  - VOMITING [None]
